FAERS Safety Report 4717168-X (Version None)
Quarter: 2005Q3

REPORT INFORMATION
  Report Type: 
  Country: None (occurrence: None)
  Receive Date: 20050719
  Receipt Date: 20030517
  Transmission Date: 20060218
  Serious: Yes (Disabling, Other)
  Sender: FDA-Public Use
  Company Number: PHEH2003US04141

PATIENT
  Age: 38 Year
  Sex: Male
  Weight: 225 kg

DRUGS (4)
  1. ASPIRIN [Concomitant]
     Route: 048
  2. MOTRIN [Concomitant]
  3. LAMISIL [Suspect]
     Indication: FUNGAL SKIN INFECTION
     Dosage: 250 MG, QD
     Route: 048
     Dates: start: 20030416, end: 20030425
  4. LOTRIMIN [Concomitant]

REACTIONS (14)
  - ANXIETY [None]
  - CONJUNCTIVITIS [None]
  - EMOTIONAL DISTRESS [None]
  - EYE PAIN [None]
  - HEADACHE [None]
  - IRITIS [None]
  - OPTIC ATROPHY [None]
  - OPTIC NERVE INJURY [None]
  - OPTIC NEURITIS [None]
  - PAPILLOEDEMA [None]
  - RETINAL DISORDER [None]
  - VISION BLURRED [None]
  - VISUAL ACUITY REDUCED [None]
  - VISUAL FIELD DEFECT [None]
